FAERS Safety Report 17349041 (Version 2)
Quarter: 2020Q2

REPORT INFORMATION
  Report Type: Spontaneous
  Country: US (occurrence: US)
  Receive Date: 20200130
  Receipt Date: 20200519
  Transmission Date: 20200713
  Serious: No
  Sender: FDA-Public Use
  Company Number: US-SA-2019SA151743

PATIENT
  Age: 62 Year
  Sex: Female
  Weight: 78.01 kg

DRUGS (4)
  1. TOUJEO [Suspect]
     Active Substance: INSULIN GLARGINE
     Dosage: 38 IU, BID
     Route: 065
  2. TOUJEO [Suspect]
     Active Substance: INSULIN GLARGINE
     Dosage: 80 IU, QD
     Route: 065
  3. TOUJEO [Suspect]
     Active Substance: INSULIN GLARGINE
     Indication: TYPE 2 DIABETES MELLITUS
     Dosage: 80 IU, QD
     Route: 065
  4. TOUJEO [Suspect]
     Active Substance: INSULIN GLARGINE
     Dosage: 41 IU, BID
     Route: 065

REACTIONS (6)
  - Wrong technique in device usage process [Unknown]
  - Toe operation [Unknown]
  - Cyst removal [Unknown]
  - Foot operation [Recovering/Resolving]
  - Bunion operation [Unknown]
  - Inappropriate schedule of product administration [Unknown]
